FAERS Safety Report 4299680-3 (Version None)
Quarter: 2004Q1

REPORT INFORMATION
  Report Type: 
  Country: None (occurrence: None)
  Receive Date: 20040126
  Receipt Date: 20030924
  Transmission Date: 20041129
  Serious: No
  Sender: FDA-Public Use
  Company Number: USA030948176

PATIENT
  Age: 8 Year
  Sex: Male

DRUGS (4)
  1. STRATTERA [Suspect]
     Dosage: 40 MG/DAY
     Dates: start: 20030401
  2. PAXIL [Concomitant]
  3. MELLARIL [Concomitant]
  4. DEPAKOTE [Concomitant]

REACTIONS (1)
  - ENURESIS [None]
